FAERS Safety Report 7079717-9 (Version None)
Quarter: 2010Q4

REPORT INFORMATION
  Report Type: 
  Country: None (occurrence: None)
  Receive Date: 20101102
  Receipt Date: 20101027
  Transmission Date: 20110411
  Serious: Yes (Life-Threatening, Hospitalization, Other)
  Sender: FDA-Public Use
  Company Number: PHHO2010DE09086

PATIENT
  Sex: Male
  Weight: 82 kg

DRUGS (17)
  1. NEORAL [Suspect]
     Indication: LIVER TRANSPLANT
     Dosage: 125 MG, BID
     Route: 048
     Dates: start: 20090422
  2. AMLODIPINE [Suspect]
  3. CELLCEPT [Concomitant]
     Indication: LIVER TRANSPLANT
  4. URSODIOL [Concomitant]
     Indication: BILE OUTPUT
  5. IDEOS [Concomitant]
  6. RAMIPRIL [Concomitant]
  7. METOPROLOL SUCCINATE [Concomitant]
  8. HCT [Concomitant]
  9. PANTOPRAZOLE SODIUM [Concomitant]
  10. TACROLIMUS [Concomitant]
  11. URSO FALK [Concomitant]
  12. COTRIM [Concomitant]
  13. AMPHOTERICIN B [Concomitant]
  14. TURIXIN [Concomitant]
  15. EBRANTIL [Concomitant]
  16. DIPIDOLOR [Concomitant]
  17. NOVALGIN [Concomitant]

REACTIONS (18)
  - AGGRESSION [None]
  - AGITATION [None]
  - BLOOD PRESSURE INCREASED [None]
  - BRAIN OEDEMA [None]
  - CEREBRAL HAEMORRHAGE [None]
  - CRANIOTOMY [None]
  - GAIT DISTURBANCE [None]
  - HEADACHE [None]
  - HEMIANOPIA [None]
  - HEMIPARESIS [None]
  - HYPOTENSION [None]
  - NAUSEA [None]
  - PERSECUTORY DELUSION [None]
  - REVERSIBLE POSTERIOR LEUKOENCEPHALOPATHY SYNDROME [None]
  - SOMNOLENCE [None]
  - SUBDURAL HAEMATOMA [None]
  - THROMBOCYTOPENIA [None]
  - VOMITING [None]
